APPROVED DRUG PRODUCT: DURAMORPH PF
Active Ingredient: MORPHINE SULFATE
Strength: 1MG/ML
Dosage Form/Route: INJECTABLE;INJECTION
Application: N018565 | Product #002 | TE Code: AP
Applicant: HIKMA PHARMACEUTICALS USA INC
Approved: Sep 18, 1984 | RLD: Yes | RS: Yes | Type: RX